FAERS Safety Report 13445525 (Version 1)
Quarter: 2017Q2

REPORT INFORMATION
  Report Type: Spontaneous
  Country: US (occurrence: US)
  Receive Date: 20170415
  Receipt Date: 20170415
  Transmission Date: 20170830
  Serious: No
  Sender: FDA-Public Use
  Company Number: US-BION-005798

PATIENT
  Age: 66 Year
  Sex: Female
  Weight: 79.38 kg

DRUGS (2)
  1. NAPROXEN SODIUM. [Suspect]
     Active Substance: NAPROXEN SODIUM
     Indication: ARTHRALGIA
     Route: 048
     Dates: start: 20161125, end: 20161125
  2. CELEBREX [Concomitant]
     Active Substance: CELECOXIB

REACTIONS (4)
  - Poor quality drug administered [Not Recovered/Not Resolved]
  - Product taste abnormal [Unknown]
  - Product quality issue [Unknown]
  - Product odour abnormal [Unknown]
